FAERS Safety Report 6690653-X (Version None)
Quarter: 2010Q2

REPORT INFORMATION
  Report Type: 
  Country: None (occurrence: None)
  Receive Date: 20100420
  Receipt Date: 20100420
  Transmission Date: 20101027
  Serious: Yes (Life-Threatening, Hospitalization)
  Sender: FDA-Public Use
  Company Number: None

PATIENT
  Age: 65 Year
  Sex: Male
  Weight: 82.73 kg

DRUGS (1)
  1. DEXAMETHASONE [Suspect]
     Dates: start: 20091228, end: 20100216

REACTIONS (1)
  - ADRENAL INSUFFICIENCY [None]
